FAERS Safety Report 22649895 (Version 1)
Quarter: 2023Q2

REPORT INFORMATION
  Report Type: Report from Study
  Country: US (occurrence: US)
  Receive Date: 20230628
  Receipt Date: 20230628
  Transmission Date: 20230722
  Serious: Yes (Other)
  Sender: FDA-Public Use
  Company Number: US-SEATTLE GENETICS-2023SGN06024

PATIENT
  Sex: Female

DRUGS (1)
  1. TUCATINIB [Suspect]
     Active Substance: TUCATINIB
     Indication: Product used for unknown indication
     Dosage: 150 MG
     Route: 065
     Dates: end: 202306

REACTIONS (5)
  - Gastric ulcer [Unknown]
  - Pharyngeal ulceration [Unknown]
  - Swollen tongue [Unknown]
  - Mouth ulceration [Unknown]
  - Diarrhoea [Unknown]
